FAERS Safety Report 5083483-6 (Version None)
Quarter: 2006Q3

REPORT INFORMATION
  Report Type: 
  Country: None (occurrence: None)
  Receive Date: 20060818
  Receipt Date: 20060803
  Transmission Date: 20061208
  Serious: Yes (Other)
  Sender: FDA-Public Use
  Company Number: DE-GLAXOSMITHKLINE-B0433032A

PATIENT
  Age: 39 Year
  Sex: Female

DRUGS (2)
  1. FORMIGRAN [Suspect]
     Indication: MIGRAINE
     Route: 048
     Dates: start: 20060803
  2. ASPIRIN [Concomitant]
     Indication: MIGRAINE

REACTIONS (3)
  - HYPERHIDROSIS [None]
  - NERVOUS SYSTEM DISORDER [None]
  - PARAESTHESIA [None]
